FAERS Safety Report 26091472 (Version 1)
Quarter: 2025Q4

REPORT INFORMATION
  Report Type: Spontaneous
  Country: US (occurrence: US)
  Receive Date: 20251126
  Receipt Date: 20251126
  Transmission Date: 20260118
  Serious: No
  Sender: JOHNSON AND JOHNSON
  Company Number: US-JNJFOC-20251168901

PATIENT
  Age: 38 Year
  Sex: Female

DRUGS (1)
  1. TREMFYA [Suspect]
     Active Substance: GUSELKUMAB
     Indication: Product used for unknown indication
     Dosage: WEEK 0, WEEK 4, AND NOW HAD AN ISSUE WITH TODAY^S DOSE FOR WEEK 8
     Route: 065

REACTIONS (3)
  - Accidental exposure to product [Unknown]
  - Device use error [Unknown]
  - Incorrect dose administered [Unknown]

NARRATIVE: CASE EVENT DATE: 20251122
